FAERS Safety Report 8826611 (Version 1)
Quarter: 2012Q4

REPORT INFORMATION
  Report Type: 
  Country: US (occurrence: US)
  Receive Date: 20121005
  Receipt Date: 20121005
  Transmission Date: 20130627
  Serious: Yes (Other)
  Sender: FDA-Public Use
  Company Number: CHPA2012US020871

PATIENT
  Sex: Female

DRUGS (1)
  1. VOLTAREN GEL [Suspect]
     Indication: ARTHRALGIA
     Dosage: Unk, once a day
     Route: 061
     Dates: start: 201110

REACTIONS (3)
  - Impaired healing [Unknown]
  - Off label use [Unknown]
  - Therapeutic response unexpected [Unknown]
